FAERS Safety Report 4467143-8 (Version None)
Quarter: 2004Q4

REPORT INFORMATION
  Report Type: 
  Country: None (occurrence: None)
  Receive Date: 20041004
  Receipt Date: 20041004
  Transmission Date: 20050328
  Serious: Yes (Disabling, Other)
  Sender: FDA-Public Use
  Company Number: None

PATIENT
  Age: 35 Year
  Sex: Female
  Weight: 70.3075 kg

DRUGS (3)
  1. PANTOPAQUE [Suspect]
     Indication: INTERVERTEBRAL DISC PROTRUSION
     Dates: start: 19800301
  2. DEPO-MEDROL [Suspect]
     Indication: INTERVERTEBRAL DISC PROTRUSION
     Dates: start: 19800101
  3. DEPO-MEDROL [Suspect]
     Indication: INTERVERTEBRAL DISC PROTRUSION
     Dates: start: 19800201

REACTIONS (1)
  - ARACHNOIDITIS [None]
